FAERS Safety Report 14929057 (Version 1)
Quarter: 2018Q2

REPORT INFORMATION
  Report Type: Spontaneous
  Country: DE (occurrence: DE)
  Receive Date: 20180523
  Receipt Date: 20180523
  Transmission Date: 20180711
  Serious: Yes (Hospitalization)
  Sender: FDA-Public Use
  Company Number: DE-IPSEN BIOPHARMACEUTICALS, INC.-2018-07448

PATIENT
  Age: 65 Year
  Sex: Female

DRUGS (4)
  1. SOMATULINE AUTOGEL 120MG [Suspect]
     Active Substance: LANREOTIDE ACETATE
     Indication: BREAST CANCER
     Dosage: 120 MG
     Route: 065
     Dates: start: 20180322
  2. SANDOSTATIN LAR DEPOT [Concomitant]
     Active Substance: OCTREOTIDE ACETATE
     Indication: METASTASES TO LIVER
  3. SOMATULINE AUTOGEL 120MG [Suspect]
     Active Substance: LANREOTIDE ACETATE
     Indication: OFF LABEL USE
  4. SANDOSTATIN LAR DEPOT [Concomitant]
     Active Substance: OCTREOTIDE ACETATE
     Indication: PANCREATIC NEUROENDOCRINE TUMOUR

REACTIONS (3)
  - Hypoglycaemic coma [Unknown]
  - Off label use [Unknown]
  - Shock hypoglycaemic [Unknown]

NARRATIVE: CASE EVENT DATE: 201804
